FAERS Safety Report 7042587-9 (Version None)
Quarter: 2010Q4

REPORT INFORMATION
  Report Type: 
  Country: None (occurrence: None)
  Receive Date: 20101013
  Receipt Date: 20101007
  Transmission Date: 20110411
  Serious: Yes (Death, Hospitalization, Other)
  Sender: FDA-Public Use
  Company Number: NL-TEVA-248522ISR

PATIENT
  Age: 50 Year
  Sex: Female

DRUGS (7)
  1. ISONIAZID [Suspect]
     Dates: start: 20031001
  2. MOXIFLOXACIN [Suspect]
     Dates: start: 20050501
  3. RIFAMPICIN [Suspect]
     Dates: start: 20031001
  4. ETHAMBUTOL HYDROCHLORIDE [Suspect]
     Dates: start: 20031001
  5. RIFABUTIN [Suspect]
  6. CLARITHROMYCIN [Suspect]
     Dates: start: 20050501
  7. AMIKACIN [Suspect]
     Dates: start: 20050701

REACTIONS (6)
  - ATRIAL FIBRILLATION [None]
  - GENERAL PHYSICAL HEALTH DETERIORATION [None]
  - HYPOXIA [None]
  - MALAISE [None]
  - MYOCARDIAL INFARCTION [None]
  - WEIGHT DECREASED [None]
